FAERS Safety Report 10307339 (Version 2)
Quarter: 2014Q3

REPORT INFORMATION
  Report Type: Spontaneous
  Country: DE (occurrence: DE)
  Receive Date: 20140716
  Receipt Date: 20140730
  Transmission Date: 20150326
  Serious: Yes (Death)
  Sender: FDA-Public Use
  Company Number: DE-BEH-2014043851

PATIENT

DRUGS (6)
  1. PROTHROMBIN COMPLEX CONCENTRATE NOS [Suspect]
     Active Substance: COAGULATION FACTOR IX HUMAN\COAGULATION FACTOR VII HUMAN\COAGULATION FACTOR X HUMAN\PROTHROMBIN
     Indication: RESPIRATORY DISTRESS
  2. FIBRINOGEN [Suspect]
     Active Substance: FIBRINOGEN HUMAN
     Indication: RESPIRATORY DISTRESS
  3. FIBRINOGEN [Suspect]
     Active Substance: FIBRINOGEN HUMAN
     Indication: PULMONARY HAEMORRHAGE
  4. HUMAN IMMUNOGLOBULIN G [Suspect]
     Active Substance: HUMAN IMMUNOGLOBULIN G
     Indication: PULMONARY HAEMORRHAGE
  5. HUMAN IMMUNOGLOBULIN G [Suspect]
     Active Substance: HUMAN IMMUNOGLOBULIN G
     Indication: RESPIRATORY DISTRESS
  6. PROTHROMBIN COMPLEX CONCENTRATE NOS [Suspect]
     Active Substance: COAGULATION FACTOR IX HUMAN\COAGULATION FACTOR VII HUMAN\COAGULATION FACTOR X HUMAN\PROTHROMBIN
     Indication: PULMONARY HAEMORRHAGE

REACTIONS (9)
  - Drug effect incomplete [Fatal]
  - Neonatal respiratory acidosis [None]
  - Metabolic acidosis [None]
  - Neonatal respiratory failure [None]
  - Off label use [None]
  - Myocardial ischaemia [None]
  - Granulocytosis [None]
  - Pleural effusion [None]
  - Beta haemolytic streptococcal infection [None]
